FAERS Safety Report 7161417-8 (Version None)
Quarter: 2010Q4

REPORT INFORMATION
  Report Type: 
  Country: None (occurrence: None)
  Receive Date: 20101215
  Receipt Date: 20101213
  Transmission Date: 20110411
  Serious: Yes (Death)
  Sender: FDA-Public Use
  Company Number: VE-PFIZER INC-2010170610

PATIENT
  Age: 95 Year
  Sex: Female

DRUGS (2)
  1. NORVASC [Suspect]
     Indication: HYPERTENSION
     Dosage: 5 MG, 1X/DAY
     Route: 048
     Dates: start: 20090101
  2. HYZAAR [Concomitant]
     Indication: HYPERTENSION
     Dosage: 100/25 MG, UNK
     Route: 048

REACTIONS (1)
  - DEATH [None]
